FAERS Safety Report 24113536 (Version 2)
Quarter: 2024Q3

REPORT INFORMATION
  Report Type: Report from Study
  Country: CA (occurrence: CA)
  Receive Date: 20240720
  Receipt Date: 20240814
  Transmission Date: 20241016
  Serious: Yes (Death, Other)
  Sender: ABBVIE
  Company Number: CA-ABBVIE-5844933

PATIENT
  Age: 53 Year
  Sex: Female

DRUGS (5)
  1. VENCLEXTA [Suspect]
     Active Substance: VENETOCLAX
     Indication: Acute myeloid leukaemia
     Dosage: FORM STRENGTH: 100 MILLIGRAM?FREQUENCY TEXT: DAILY FROM DAYS 5 TO 28
     Route: 048
     Dates: start: 20240530, end: 20240709
  2. AZACITIDINE [Concomitant]
     Active Substance: AZACITIDINE
     Indication: Product used for unknown indication
  3. VANCOMYCIN [Concomitant]
     Active Substance: VANCOMYCIN
     Indication: Product used for unknown indication
  4. CASPOFUNGIN [Concomitant]
     Active Substance: CASPOFUNGIN
     Indication: Product used for unknown indication
  5. PIPERACILLIN AND TAZOBACTAM [Concomitant]
     Active Substance: PIPERACILLIN SODIUM\TAZOBACTAM SODIUM
     Indication: Product used for unknown indication

REACTIONS (8)
  - Cerebral haemorrhage [Fatal]
  - Cholecystitis [Unknown]
  - Off label use [Unknown]
  - Febrile neutropenia [Unknown]
  - Cholangitis [Unknown]
  - Thrombocytopenia [Unknown]
  - Corticobasal degeneration [Unknown]
  - Lithiasis [Unknown]

NARRATIVE: CASE EVENT DATE: 20240101
